FAERS Safety Report 6160804-4 (Version None)
Quarter: 2009Q2

REPORT INFORMATION
  Report Type: 
  Country: None (occurrence: None)
  Receive Date: 20090420
  Receipt Date: 20090416
  Transmission Date: 20091009
  Serious: No
  Sender: FDA-Public Use
  Company Number: US-B.I. PHARMACEUTICALS,INC./RIDGEFIELD-2007-BP-24876BP

PATIENT
  Sex: Female

DRUGS (13)
  1. SPIRIVA [Suspect]
     Indication: CHRONIC OBSTRUCTIVE PULMONARY DISEASE
     Dosage: 18MCG
     Route: 055
     Dates: start: 20060101, end: 20060101
  2. COMBIVENT [Concomitant]
  3. QVAR 40 [Concomitant]
  4. ATENOLOL [Concomitant]
  5. ACIPHEX [Concomitant]
  6. ASPIRIN [Concomitant]
  7. ESTRACE [Concomitant]
  8. BACTRIM DS [Concomitant]
     Indication: INFECTION PROPHYLAXIS
  9. OXYBUTYNIN CHLORIDE [Concomitant]
  10. CALCIUM AND VITAMIN D [Concomitant]
  11. TYLENOL (CAPLET) [Concomitant]
  12. CLOBETASOL PROPIONATE [Concomitant]
     Indication: VAGINAL DISORDER
  13. FIORICET [Concomitant]
     Indication: MIGRAINE

REACTIONS (3)
  - ADVERSE DRUG REACTION [None]
  - DYSURIA [None]
  - URINARY RETENTION [None]
